FAERS Safety Report 4837806-0 (Version None)
Quarter: 2005Q4

REPORT INFORMATION
  Report Type: 
  Country: None (occurrence: None)
  Receive Date: 20051123
  Receipt Date: 20051123
  Transmission Date: 20060501
  Serious: Yes (Hospitalization, Other)
  Sender: FDA-Public Use
  Company Number: None

PATIENT
  Sex: Female
  Weight: 76.8 kg

DRUGS (3)
  1. SANDOSTATIN [Suspect]
     Indication: NEOPLASM
     Dosage: SEE IMAGE
     Route: 058
     Dates: start: 20051006, end: 20051101
  2. SANDOSTATIN [Suspect]
     Indication: NEOPLASM
     Dosage: SEE IMAGE
     Route: 058
     Dates: start: 20051108
  3. RADIATION [Suspect]
     Dosage: SEE IMAGE
     Dates: start: 20051108

REACTIONS (11)
  - CONSTIPATION [None]
  - DIARRHOEA [None]
  - ENTEROCOLITIS [None]
  - ESCHERICHIA INFECTION [None]
  - FACE OEDEMA [None]
  - FEBRILE NEUTROPENIA [None]
  - HEPATIC LESION [None]
  - INCORRECT DRUG ADMINISTRATION DURATION [None]
  - PRURITUS [None]
  - RADIATION SKIN INJURY [None]
  - SEPSIS [None]
